FAERS Safety Report 8904820 (Version 1)
Quarter: 2012Q4

REPORT INFORMATION
  Report Type: 
  Country: US (occurrence: US)
  Receive Date: 20121113
  Receipt Date: 20121113
  Transmission Date: 20130627
  Serious: No
  Sender: FDA-Public Use
  Company Number: US-009507513-1211USA004685

PATIENT
  Sex: Male

DRUGS (2)
  1. PEG-INTRON [Suspect]
     Indication: HEPATITIS C
     Dosage: UNK
     Dates: start: 20121024
  2. RIBAVIRIN [Suspect]
     Indication: HEPATITIS C
     Dosage: UNK
     Dates: start: 20121025

REACTIONS (7)
  - Renal pain [Unknown]
  - Influenza [Unknown]
  - Headache [Unknown]
  - Myalgia [Unknown]
  - Back pain [Unknown]
  - Irritability [Unknown]
  - Pyrexia [Unknown]
